FAERS Safety Report 24125318 (Version 2)
Quarter: 2024Q3

REPORT INFORMATION
  Report Type: Spontaneous
  Country: CN (occurrence: CN)
  Receive Date: 20240723
  Receipt Date: 20240731
  Transmission Date: 20241017
  Serious: Yes (Life-Threatening, Hospitalization, Other)
  Sender: MACLEODS
  Company Number: CN-MLMSERVICE-20240703-PI120430-00130-1

PATIENT

DRUGS (6)
  1. TENOFOVIR [Suspect]
     Active Substance: TENOFOVIR
     Indication: Hepatitis B
     Route: 065
     Dates: start: 202203
  2. DONAFENIB [Concomitant]
     Active Substance: DONAFENIB
     Dosage: THREE COURSES
     Route: 065
     Dates: start: 202303, end: 20230526
  3. SINTILIMAB [Concomitant]
     Active Substance: SINTILIMAB
     Dosage: THREE COURSES
     Route: 065
     Dates: start: 202303, end: 20230526
  4. DICLOFENAC [Concomitant]
     Active Substance: DICLOFENAC
     Dosage: 3 DAYS A WEEK
     Route: 065
     Dates: start: 2022, end: 20230530
  5. DICLOFENAC [Concomitant]
     Active Substance: DICLOFENAC
  6. AMLODIPINE [Concomitant]
     Active Substance: AMLODIPINE BESYLATE
     Indication: Hypertension
     Route: 065

REACTIONS (2)
  - Nephropathy toxic [Not Recovered/Not Resolved]
  - Metabolic acidosis [Not Recovered/Not Resolved]

NARRATIVE: CASE EVENT DATE: 20220601
